FAERS Safety Report 7523555-7 (Version None)
Quarter: 2011Q2

REPORT INFORMATION
  Report Type: 
  Country: None (occurrence: None)
  Receive Date: 20110603
  Receipt Date: 20110525
  Transmission Date: 20111010
  Serious: Yes (Hospitalization)
  Sender: FDA-Public Use
  Company Number: BR-ASTRAZENECA-2011SE32849

PATIENT
  Age: 54 Year
  Sex: Male
  Weight: 84 kg

DRUGS (5)
  1. ATACAND [Suspect]
     Route: 048
     Dates: end: 20110525
  2. LANTUS [Concomitant]
     Indication: DIABETES MELLITUS
     Dosage: 40 U
  3. ATACAND [Suspect]
     Indication: HYPERTENSION
     Route: 048
     Dates: start: 20090101, end: 20100801
  4. INSULIN [Concomitant]
     Dosage: 4 U
  5. INSULIN [Concomitant]
     Indication: DIABETES MELLITUS
     Dosage: 8 U

REACTIONS (9)
  - HYPOTHYROIDISM [None]
  - FATIGUE [None]
  - DRUG DOSE OMISSION [None]
  - STENT PLACEMENT [None]
  - OEDEMA PERIPHERAL [None]
  - ASTHENIA [None]
  - RENAL FAILURE [None]
  - ARTERIAL OCCLUSIVE DISEASE [None]
  - ANGIOPLASTY [None]
